FAERS Safety Report 7627407-3 (Version None)
Quarter: 2011Q3

REPORT INFORMATION
  Report Type: 
  Country: None (occurrence: None)
  Receive Date: 20110721
  Receipt Date: 20110630
  Transmission Date: 20111222
  Serious: No
  Sender: FDA-Public Use
  Company Number: US-PFIZER INC-2011163104

PATIENT
  Sex: Male

DRUGS (8)
  1. ETANERCEPT [Concomitant]
     Indication: PSORIATIC ARTHROPATHY
     Dosage: 50 MG, 2 TIMES/WK
     Dates: start: 20050101
  2. AVAPRO [Concomitant]
     Dosage: UNK
  3. NEXIUM [Concomitant]
     Dosage: UNK
  4. ETANERCEPT [Concomitant]
     Indication: PSORIASIS
  5. NASONEX [Concomitant]
     Dosage: UNK
  6. SIMVASTATIN [Concomitant]
     Dosage: UNK
  7. AZITHROMYCIN [Suspect]
     Indication: SINUSITIS
     Dosage: UNK
     Dates: start: 20110401
  8. LISINOPRIL AND HYDROCHLOROTHIAZIDE [Concomitant]
     Dosage: UNK

REACTIONS (1)
  - DRUG HYPERSENSITIVITY [None]
